FAERS Safety Report 7324898-2 (Version None)
Quarter: 2011Q1

REPORT INFORMATION
  Report Type: 
  Country: None (occurrence: None)
  Receive Date: 20110301
  Receipt Date: 20110223
  Transmission Date: 20110831
  Serious: Yes (Hospitalization)
  Sender: FDA-Public Use
  Company Number: US-RB-018453-10

PATIENT
  Age: 74 Year
  Sex: Female

DRUGS (1)
  1. SUBOXONE [Suspect]
     Indication: PAIN
     Route: 060
     Dates: start: 20101018, end: 20101018

REACTIONS (3)
  - OXYGEN SATURATION DECREASED [None]
  - DRUG WITHDRAWAL SYNDROME [None]
  - OFF LABEL USE [None]
